FAERS Safety Report 10218387 (Version 1)
Quarter: 2014Q2

REPORT INFORMATION
  Report Type: Spontaneous
  Country: JP (occurrence: JP)
  Receive Date: 20140605
  Receipt Date: 20140605
  Transmission Date: 20141212
  Serious: Yes (Other)
  Sender: FDA-Public Use
  Company Number: JP-TEVA-484277ISR

PATIENT
  Sex: Male

DRUGS (1)
  1. (TS)URSODEOXYCHOLIC ACID TABLET,TAB [Suspect]
     Route: 048

REACTIONS (1)
  - Pemphigoid [Unknown]
